FAERS Safety Report 12248495 (Version 1)
Quarter: 2016Q2

REPORT INFORMATION
  Report Type: Spontaneous
  Country: US (occurrence: None)
  Receive Date: 20160407
  Receipt Date: 20160407
  Transmission Date: 20160815
  Serious: No
  Sender: FDA-Public Use
  Company Number: None

PATIENT
  Age: 4 Year
  Sex: Male
  Weight: 17.24 kg

DRUGS (2)
  1. MONTELUKAST 4MG ORAL GRANULES DR. REDDYS [Suspect]
     Active Substance: MONTELUKAST SODIUM
     Indication: MULTIPLE ALLERGIES
     Route: 048
  2. MONTELUKAST 4MG ORAL GRANULES DR. REDDYS [Suspect]
     Active Substance: MONTELUKAST SODIUM
     Indication: ASTHMA
     Route: 048

REACTIONS (3)
  - Vomiting [None]
  - Condition aggravated [None]
  - Aggression [None]
